FAERS Safety Report 9664494 (Version 1)
Quarter: 2013Q4

REPORT INFORMATION
  Report Type: Spontaneous
  Country: US (occurrence: None)
  Receive Date: 20131030
  Receipt Date: 20131030
  Transmission Date: 20140711
  Serious: No
  Sender: FDA-Public Use
  Company Number: None

PATIENT
  Age: 6 Year
  Sex: 0
  Weight: 27.22 kg

DRUGS (5)
  1. DIETARY SUPPLEMENT [Suspect]
     Indication: COLITIS ULCERATIVE
     Dosage: 1 TIME
  2. APREZO [Concomitant]
  3. CURCUMIN [Concomitant]
  4. ALOE VERA JUICE [Concomitant]
  5. L-GLUTAMINE ACIDS [Concomitant]

REACTIONS (2)
  - Eye swelling [None]
  - Dyspnoea [None]
